FAERS Safety Report 5881626-5 (Version None)
Quarter: 2008Q3

REPORT INFORMATION
  Report Type: 
  Country: None (occurrence: None)
  Receive Date: 20080912
  Receipt Date: 20080707
  Transmission Date: 20090109
  Serious: No
  Sender: FDA-Public Use
  Company Number: US-ABBOTT-08P-163-0461364-00

PATIENT
  Sex: Female
  Weight: 65.376 kg

DRUGS (16)
  1. HUMIRA [Suspect]
     Indication: RHEUMATOID ARTHRITIS
     Route: 050
     Dates: start: 20080601
  2. PREDNISONE TAB [Concomitant]
     Indication: INFLAMMATION
     Route: 048
  3. LEVOTHYROXINE SODIUM [Concomitant]
     Indication: HYPOTHYROIDISM
     Route: 048
  4. CYANOCOBALAMIN-TANNIN COMPLEX [Concomitant]
     Indication: SUPPLEMENTATION THERAPY
     Route: 050
  5. VALIUM [Concomitant]
     Indication: SEDATION
     Route: 048
  6. PROPACET 100 [Concomitant]
     Indication: PAIN
     Route: 048
  7. CALCIUM [Concomitant]
     Indication: SUPPLEMENTATION THERAPY
     Route: 048
  8. CALCIUM [Concomitant]
  9. RANITIDINE [Concomitant]
     Indication: GASTRIC DISORDER
     Route: 048
  10. FISH OIL [Concomitant]
     Indication: SUPPLEMENTATION THERAPY
     Route: 048
  11. MULTI-VITAMIN [Concomitant]
     Indication: SUPPLEMENTATION THERAPY
     Route: 048
  12. MACROGOL [Concomitant]
     Indication: CONSTIPATION
     Dosage: PACKAGES
     Route: 048
     Dates: start: 20080101
  13. SENOKOT [Concomitant]
     Indication: CONSTIPATION
     Route: 048
     Dates: start: 20080101
  14. METAMUCIL [Concomitant]
     Indication: CONSTIPATION
     Route: 048
     Dates: start: 20080101
  15. SOOTHE GEL [Concomitant]
     Indication: DRY EYE
     Dosage: BOTH EYES
  16. LACRILUBE [Concomitant]
     Indication: DRY EYE
     Dosage: BOTH EYES

REACTIONS (9)
  - CHEST PAIN [None]
  - CONSTIPATION [None]
  - FIBROMYALGIA [None]
  - FLUSHING [None]
  - HEADACHE [None]
  - HOT FLUSH [None]
  - MYALGIA [None]
  - PAIN [None]
  - TINNITUS [None]
